FAERS Safety Report 6370112-4 (Version None)
Quarter: 2009Q3

REPORT INFORMATION
  Report Type: 
  Country: None (occurrence: None)
  Receive Date: 20090923
  Receipt Date: 20071120
  Transmission Date: 20100115
  Serious: No
  Sender: FDA-Public Use
  Company Number: US-ASTRAZENECA-2006UW22219

PATIENT
  Age: 19229 Day
  Sex: Male
  Weight: 104.3 kg

DRUGS (13)
  1. SEROQUEL [Suspect]
     Indication: DEPRESSION
     Route: 048
     Dates: start: 20010101, end: 20040101
  2. SEROQUEL [Suspect]
     Indication: MAJOR DEPRESSION
     Route: 048
     Dates: start: 20010101, end: 20040101
  3. SEROQUEL [Suspect]
     Dosage: 25-50MG
     Route: 048
     Dates: start: 20011025
  4. SEROQUEL [Suspect]
     Dosage: 25-50MG
     Route: 048
     Dates: start: 20011025
  5. CELEXA [Concomitant]
     Indication: ANXIETY
     Route: 048
  6. TOPAMAX [Concomitant]
     Route: 048
  7. FLONAZE [Concomitant]
     Route: 048
  8. NEURONTIN [Concomitant]
     Route: 048
  9. SERZONE [Concomitant]
     Route: 048
  10. ATIVAN [Concomitant]
     Route: 048
  11. VIAGRA [Concomitant]
     Dosage: 100 MG, HALF,  TWICE A DAY
     Route: 048
  12. KLONOPIN [Concomitant]
     Dosage: 0.5 MG, OCCASIONALLY/ FOUR WEEKLY
     Route: 048
  13. ZYPREXA [Concomitant]
     Route: 048

REACTIONS (9)
  - ABDOMINAL PAIN UPPER [None]
  - AMNESIA [None]
  - COUGH [None]
  - DIABETES MELLITUS [None]
  - HEADACHE [None]
  - HYPERHIDROSIS [None]
  - HYPOACUSIS [None]
  - NECK PAIN [None]
  - NIGHTMARE [None]
